FAERS Safety Report 24332919 (Version 1)
Quarter: 2024Q3

REPORT INFORMATION
  Report Type: Spontaneous
  Country: US (occurrence: None)
  Receive Date: 20240917
  Receipt Date: 20240917
  Transmission Date: 20241016
  Serious: Yes (Hospitalization)
  Sender: Public
  Company Number: None

PATIENT
  Sex: Female

DRUGS (9)
  1. LOKELMA [Suspect]
     Active Substance: SODIUM ZIRCONIUM CYCLOSILICATE
     Indication: Hyperkalaemia
     Dosage: OTHER QUANTITY :  MIX 1 PACKET WITH 45 ML QF WATER ;?FREQUENCY : DAILY;?
     Route: 048
     Dates: start: 20240620
  2. ALOGLIPTIN [Concomitant]
     Active Substance: ALOGLIPTIN
  3. AMLODIPINE [Concomitant]
     Active Substance: AMLODIPINE BESYLATE
  4. ASPIRIN LOW TAB [Concomitant]
  5. ATORVASTATIN [Concomitant]
     Active Substance: ATORVASTATIN
  6. BASAGLAR [Concomitant]
     Active Substance: INSULIN GLARGINE
  7. CARVEDILOL [Concomitant]
     Active Substance: CARVEDILOL
  8. CLONIDINE [Concomitant]
     Active Substance: CLONIDINE
  9. DICYCLOMINE [Concomitant]
     Active Substance: DICYCLOMINE HYDROCHLORIDE

REACTIONS (2)
  - Hospitalisation [None]
  - Therapy interrupted [None]
